FAERS Safety Report 7402037-7 (Version None)
Quarter: 2011Q2

REPORT INFORMATION
  Report Type: 
  Country: None (occurrence: None)
  Receive Date: 20110408
  Receipt Date: 20110328
  Transmission Date: 20111010
  Serious: Yes (Hospitalization)
  Sender: FDA-Public Use
  Company Number: US-RANBAXY-2011RR-41340

PATIENT
  Sex: Female

DRUGS (20)
  1. CIPROFLOXACIN [Suspect]
     Dosage: 500 MG, UNK
     Dates: start: 19970317
  2. CIPROFLOXACIN [Suspect]
     Dosage: 500 MG, UNK
     Dates: start: 20060620
  3. CIPROFLOXACIN [Suspect]
     Dosage: 250 MG, UNK
     Dates: start: 20040719
  4. CIPROFLOXACIN [Suspect]
     Dosage: 500 MG, UNK
     Dates: start: 19980203
  5. CIPROFLOXACIN [Suspect]
     Dosage: 500 MG, UNK
     Dates: start: 20001204
  6. LEVAQUIN [Suspect]
     Indication: CYSTITIS
     Dosage: UNK
     Route: 048
     Dates: start: 19990101, end: 20091231
  7. LEVAQUIN [Suspect]
     Indication: URINARY TRACT INFECTION
     Dosage: 500 MG, UNK
     Dates: start: 20050204
  8. CIPROFLOXACIN [Suspect]
     Dosage: 500 MG, UNK
     Dates: start: 20090521
  9. LEVAQUIN [Suspect]
     Dosage: 250 MG, UNK
     Dates: start: 20060321
  10. CIPROFLOXACIN [Suspect]
     Dosage: 250 MG, UNK
     Dates: start: 20091015
  11. CIPROFLOXACIN [Suspect]
     Indication: URINARY TRACT INFECTION
     Dosage: 500 MG, BID
     Route: 065
  12. CIPROFLOXACIN [Suspect]
     Dosage: 250 MG, UNK
     Dates: start: 20020418
  13. LEVAQUIN [Suspect]
     Dosage: 250 MG, UNK
     Dates: start: 20061026
  14. CIPROFLOXACIN [Suspect]
     Dosage: 500 MG, UNK
     Dates: start: 20061213
  15. CIPROFLOXACIN [Suspect]
     Dosage: 500 MG, UNK
     Dates: start: 20101115
  16. CIPROFLOXACIN [Suspect]
     Dosage: 500 MG, UNK
     Dates: start: 20000713
  17. CIPROFLOXACIN [Suspect]
     Dosage: 500 MG, UNK
     Dates: start: 20050627
  18. CIPROFLOXACIN [Suspect]
     Dosage: 500 MG, UNK
     Dates: start: 20100514
  19. LEVAQUIN [Suspect]
     Dosage: 250 MG, UNK
     Dates: start: 20080418
  20. LEVAQUIN [Suspect]
     Dosage: 250 MG, UNK
     Dates: start: 20101209

REACTIONS (15)
  - TENDON RUPTURE [None]
  - TRIGGER FINGER [None]
  - FIBROMYALGIA [None]
  - JOINT EFFUSION [None]
  - MENISCUS LESION [None]
  - JOINT INJURY [None]
  - BURSITIS [None]
  - ROTATOR CUFF SYNDROME [None]
  - INSOMNIA [None]
  - TENDON DISORDER [None]
  - TENDONITIS [None]
  - OSTEOARTHRITIS [None]
  - PAIN IN EXTREMITY [None]
  - CHONDROCALCINOSIS PYROPHOSPHATE [None]
  - CONDITION AGGRAVATED [None]
